FAERS Safety Report 23536354 (Version 3)
Quarter: 2024Q4

REPORT INFORMATION
  Report Type: Report from Study
  Country: DE (occurrence: DE)
  Receive Date: 20240219
  Receipt Date: 20241015
  Transmission Date: 20250115
  Serious: Yes (Hospitalization, Other)
  Sender: SANDOZ
  Company Number: DE-SANDOZ-SDZ2024DE015608

PATIENT
  Sex: Female

DRUGS (30)
  1. ETANERCEPT [Suspect]
     Active Substance: ETANERCEPT
     Dosage: 15 MG
     Route: 065
     Dates: start: 20230802
  2. ETANERCEPT [Suspect]
     Active Substance: ETANERCEPT
     Dosage: 15 MG
     Route: 065
     Dates: start: 20240205
  3. ETANERCEPT [Suspect]
     Active Substance: ETANERCEPT
     Indication: Product used for unknown indication
     Dosage: 50 MG EVERY 7 DAYS UNTIL 09.11.2023
     Route: 065
     Dates: start: 202304, end: 20231109
  4. HYDROXYCHLOROQUINE SULFATE [Suspect]
     Active Substance: HYDROXYCHLOROQUINE SULFATE
     Indication: Product used for unknown indication
     Dosage: HCQ 400
     Route: 065
     Dates: start: 20170801
  5. HYDROXYCHLOROQUINE SULFATE [Suspect]
     Active Substance: HYDROXYCHLOROQUINE SULFATE
     Dosage: HCQ 400
     Route: 065
     Dates: start: 20180228
  6. HYDROXYCHLOROQUINE SULFATE [Suspect]
     Active Substance: HYDROXYCHLOROQUINE SULFATE
     Dosage: HCQ 400
     Route: 065
     Dates: start: 20180904
  7. LEFLUNOMIDE [Suspect]
     Active Substance: LEFLUNOMIDE
     Dosage: 15
     Route: 065
     Dates: start: 20151126
  8. LEFLUNOMIDE [Suspect]
     Active Substance: LEFLUNOMIDE
     Dosage: 15
     Route: 065
     Dates: start: 20160215
  9. LEFLUNOMIDE [Suspect]
     Active Substance: LEFLUNOMIDE
     Dosage: 15
     Route: 065
     Dates: start: 20160801
  10. LEFLUNOMIDE [Suspect]
     Active Substance: LEFLUNOMIDE
     Indication: Product used for unknown indication
     Dosage: 20
     Route: 065
     Dates: start: 20150827
  11. METHOTREXATE [Suspect]
     Active Substance: METHOTREXATE
     Indication: Product used for unknown indication
     Dosage: 15,0
     Route: 065
     Dates: start: 20200226
  12. METHOTREXATE [Suspect]
     Active Substance: METHOTREXATE
     Dosage: 15,0
     Route: 065
     Dates: start: 20200722
  13. METHOTREXATE [Suspect]
     Active Substance: METHOTREXATE
     Dosage: 15,0
     Route: 065
     Dates: start: 20210224
  14. METHOTREXATE [Suspect]
     Active Substance: METHOTREXATE
     Dosage: 20,0
     Route: 065
     Dates: start: 20210916
  15. METHOTREXATE [Suspect]
     Active Substance: METHOTREXATE
     Dosage: 20,0
     Route: 065
     Dates: start: 20220419
  16. METHOTREXATE [Suspect]
     Active Substance: METHOTREXATE
     Dosage: 20,0
     Route: 065
     Dates: start: 20220801
  17. METHOTREXATE [Suspect]
     Active Substance: METHOTREXATE
     Dosage: 20,0
     Route: 065
     Dates: start: 20230131
  18. SULFASALAZINE [Suspect]
     Active Substance: SULFASALAZINE
     Indication: Product used for unknown indication
     Dosage: 1000
     Route: 065
     Dates: start: 20160801
  19. SULFASALAZINE [Suspect]
     Active Substance: SULFASALAZINE
     Dosage: 2000
     Route: 065
     Dates: start: 20170222
  20. XELJANZ [Suspect]
     Active Substance: TOFACITINIB CITRATE
     Indication: Product used for unknown indication
     Dosage: 5 MG
     Route: 065
     Dates: start: 20180904
  21. XELJANZ [Suspect]
     Active Substance: TOFACITINIB CITRATE
     Dosage: 5 MG
     Route: 065
     Dates: start: 20190123
  22. XELJANZ [Suspect]
     Active Substance: TOFACITINIB CITRATE
     Dosage: 5 MG
     Route: 065
     Dates: start: 20190123
  23. XELJANZ [Suspect]
     Active Substance: TOFACITINIB CITRATE
     Dosage: 5 MG
     Route: 065
     Dates: start: 20190821, end: 201910
  24. ALENDRONIC ACID [Concomitant]
     Active Substance: ALENDRONIC ACID
     Indication: Product used for unknown indication
     Dosage: 70 MG
     Route: 065
  25. ASPIRIN [Concomitant]
     Active Substance: ASPIRIN
     Indication: Product used for unknown indication
     Dosage: 100 MG
     Route: 065
  26. CANDESARTAN [Concomitant]
     Active Substance: CANDESARTAN
     Indication: Product used for unknown indication
     Dosage: 8 MG
     Route: 065
  27. CELECOXIB [Concomitant]
     Active Substance: CELECOXIB
     Indication: Product used for unknown indication
     Dosage: 100 MG, BID
     Route: 065
  28. CHOLECALCIFEROL [Concomitant]
     Active Substance: CHOLECALCIFEROL
     Indication: Product used for unknown indication
     Dosage: 20000 IU, QW
     Route: 065
  29. RINVOQ [Concomitant]
     Active Substance: UPADACITINIB
     Dosage: 15 MG
     Route: 065
     Dates: start: 20240205
  30. RINVOQ [Concomitant]
     Active Substance: UPADACITINIB
     Indication: Product used for unknown indication
     Dosage: 15 MG SINCE 15.11.2023
     Route: 065
     Dates: start: 20231115

REACTIONS (1)
  - Rheumatoid arthritis [Recovered/Resolved]

NARRATIVE: CASE EVENT DATE: 20231108
